FAERS Safety Report 5073210-0 (Version None)
Quarter: 2006Q3

REPORT INFORMATION
  Report Type: 
  Country: None (occurrence: None)
  Receive Date: 20060710
  Receipt Date: 20060504
  Transmission Date: 20061208
  Serious: No
  Sender: FDA-Public Use
  Company Number: 2006US000993

PATIENT
  Age: 47 Year
  Sex: Male

DRUGS (1)
  1. MYCAMINE [Suspect]
     Indication: OESOPHAGEAL CANDIDIASIS
     Dosage: SEE IMAGE
     Route: 051

REACTIONS (1)
  - HYPERSENSITIVITY [None]
